FAERS Safety Report 7031558-4 (Version None)
Quarter: 2010Q4

REPORT INFORMATION
  Report Type: 
  Country: None (occurrence: None)
  Receive Date: 20101006
  Receipt Date: 20101006
  Transmission Date: 20110411
  Serious: No
  Sender: FDA-Public Use
  Company Number: None

PATIENT
  Age: 11 Year
  Sex: Female
  Weight: 31.7518 kg

DRUGS (1)
  1. MOMETASONE FUROATE [Suspect]
     Indication: RASH
     Dosage: APPLY TO SKIN TWICE DAILY TOP
     Route: 061
     Dates: start: 20100421, end: 20100426

REACTIONS (2)
  - HALLUCINATION, AUDITORY [None]
  - SKIN BURNING SENSATION [None]
